FAERS Safety Report 16183866 (Version 1)
Quarter: 2019Q2

REPORT INFORMATION
  Report Type: Spontaneous
  Country: US (occurrence: US)
  Receive Date: 20190410
  Receipt Date: 20190410
  Transmission Date: 20190711
  Serious: Yes (Other)
  Sender: FDA-Public Use
  Company Number: None

PATIENT
  Age: 83 Year
  Sex: Male

DRUGS (22)
  1. CYCLOPHOSPHAMIDE. [Suspect]
     Active Substance: CYCLOPHOSPHAMIDE
     Indication: NEOPLASM PROSTATE
     Route: 048
     Dates: start: 20190116
  2. ASPIRIN. [Concomitant]
     Active Substance: ASPIRIN
  3. TYLENOL [Concomitant]
     Active Substance: ACETAMINOPHEN
  4. DIPHENHYDRAMINE. [Concomitant]
     Active Substance: DIPHENHYDRAMINE
  5. FAMOTIDINE. [Concomitant]
     Active Substance: FAMOTIDINE
  6. PANTOPRAZOLE [Concomitant]
     Active Substance: PANTOPRAZOLE
  7. CEPHALEXIN. [Concomitant]
     Active Substance: CEPHALEXIN
  8. ERGOCALCIFEROL. [Concomitant]
     Active Substance: ERGOCALCIFEROL
  9. DEXAMETHASONE. [Concomitant]
     Active Substance: DEXAMETHASONE
  10. SENNA [Concomitant]
     Active Substance: SENNA LEAF\SENNOSIDES\SENNOSIDES A AND B
  11. ROSUVASTATIN. [Concomitant]
     Active Substance: ROSUVASTATIN
  12. FERROUS GLUCONATE [Concomitant]
     Active Substance: FERROUS GLUCONATE
  13. CARVIDILOL [Concomitant]
  14. COENZYME Q10 [Concomitant]
     Active Substance: UBIDECARENONE
  15. XARELTO [Concomitant]
     Active Substance: RIVAROXABAN
  16. HEPARIN [Concomitant]
     Active Substance: HEPARIN SODIUM
  17. GRANISETRON [Concomitant]
     Active Substance: GRANISETRON
  18. PREDNISONE. [Concomitant]
     Active Substance: PREDNISONE
  19. DOCETAXEL. [Concomitant]
     Active Substance: DOCETAXEL
  20. CLOTRIMAZOLE. [Concomitant]
     Active Substance: CLOTRIMAZOLE
  21. PREDNISONE. [Concomitant]
     Active Substance: PREDNISONE
  22. ZOLADEX [Concomitant]
     Active Substance: GOSERELIN ACETATE

REACTIONS (2)
  - Fatigue [None]
  - Asthenia [None]
